FAERS Safety Report 7720279-8 (Version None)
Quarter: 2011Q3

REPORT INFORMATION
  Report Type: 
  Country: None (occurrence: None)
  Receive Date: 20110831
  Receipt Date: 20110829
  Transmission Date: 20111222
  Serious: Yes (Other)
  Sender: FDA-Public Use
  Company Number: JP-PFIZER INC-2011200846

PATIENT
  Age: 78 Year
  Sex: Female

DRUGS (2)
  1. ZOLOFT [Suspect]
     Dosage: 75 MG, UNK
     Route: 048
     Dates: start: 20110721, end: 20110817
  2. ARICEPT [Concomitant]
     Dosage: 5 MG, UNK
     Route: 048

REACTIONS (1)
  - MANIA [None]
